FAERS Safety Report 14939553 (Version 1)
Quarter: 2018Q2

REPORT INFORMATION
  Report Type: Spontaneous
  Country: KR (occurrence: KR)
  Receive Date: 20180525
  Receipt Date: 20180525
  Transmission Date: 20180711
  Serious: Yes (Death)
  Sender: FDA-Public Use
  Company Number: KR-IMPAX LABORATORIES, INC-2018-IPXL-01741

PATIENT
  Age: 57 Year
  Sex: Male

DRUGS (4)
  1. IMMUNE GLOBULIN NOS [Suspect]
     Active Substance: IMMUNE GLOBULIN NOS
     Indication: FATAL FAMILIAL INSOMNIA
     Dosage: UNK
     Route: 065
  2. DOXYCYCLINE HYCLATE DELAYED RELEASE [Suspect]
     Active Substance: DOXYCYCLINE HYCLATE
     Indication: PRODUCT USE IN UNAPPROVED INDICATION
  3. AMANTADINE. [Suspect]
     Active Substance: AMANTADINE HYDROCHLORIDE
     Indication: FATAL FAMILIAL INSOMNIA
     Dosage: UNK
     Route: 065
  4. DOXYCYCLINE HYCLATE DELAYED RELEASE [Suspect]
     Active Substance: DOXYCYCLINE HYCLATE
     Indication: FATAL FAMILIAL INSOMNIA
     Dosage: UNK
     Route: 065

REACTIONS (3)
  - Disease progression [None]
  - Product use in unapproved indication [Unknown]
  - Fatal familial insomnia [Fatal]
